FAERS Safety Report 7920614-1 (Version None)
Quarter: 2011Q4

REPORT INFORMATION
  Report Type: 
  Country: None (occurrence: None)
  Receive Date: 20111117
  Receipt Date: 20111114
  Transmission Date: 20120403
  Serious: Yes (Hospitalization)
  Sender: FDA-Public Use
  Company Number: PHHY2011FR099763

PATIENT
  Sex: Male

DRUGS (1)
  1. GLEEVEC [Suspect]
     Indication: GASTROINTESTINAL STROMAL TUMOUR
     Dosage: 1 DF, QD
     Route: 048
     Dates: start: 20110719, end: 20111008

REACTIONS (7)
  - FACE OEDEMA [None]
  - ERYTHEMA [None]
  - LOCALISED OEDEMA [None]
  - EYELID OEDEMA [None]
  - SKIN TOXICITY [None]
  - PRURITUS [None]
  - VISUAL ACUITY REDUCED [None]
